FAERS Safety Report 7787676-6 (Version None)
Quarter: 2011Q3

REPORT INFORMATION
  Report Type: 
  Country: None (occurrence: None)
  Receive Date: 20110929
  Receipt Date: 20110920
  Transmission Date: 20111222
  Serious: Yes (Hospitalization)
  Sender: FDA-Public Use
  Company Number: US-ASTRAZENECA-2011SE39583

PATIENT
  Age: 47 Year
  Sex: Male

DRUGS (1)
  1. SEROQUEL XR [Suspect]
     Route: 048

REACTIONS (8)
  - ARTHRALGIA [None]
  - MENTAL DISORDER [None]
  - TRANSIENT ISCHAEMIC ATTACK [None]
  - DIABETES MELLITUS [None]
  - CHEST PAIN [None]
  - PAIN IN EXTREMITY [None]
  - ULCER [None]
  - WRONG TECHNIQUE IN DRUG USAGE PROCESS [None]
